FAERS Safety Report 14308909 (Version 2)
Quarter: 2018Q1

REPORT INFORMATION
  Report Type: Spontaneous
  Country: US (occurrence: US)
  Receive Date: 20171220
  Receipt Date: 20180117
  Transmission Date: 20180509
  Serious: No
  Sender: FDA-Public Use
  Company Number: US-GLAXOSMITHKLINE-US2017GSK193902

PATIENT
  Sex: Male
  Weight: 130.16 kg

DRUGS (1)
  1. INCRUSE ELLIPTA [Suspect]
     Active Substance: UMECLIDINIUM BROMIDE
     Indication: CHRONIC OBSTRUCTIVE PULMONARY DISEASE
     Dosage: UNK
     Dates: start: 20170331, end: 20171122

REACTIONS (3)
  - Gynaecomastia [Unknown]
  - Breast tenderness [Recovered/Resolved]
  - Breast pain [Recovered/Resolved]
